FAERS Safety Report 18031180 (Version 2)
Quarter: 2020Q3

REPORT INFORMATION
  Report Type: Spontaneous
  Country: FR (occurrence: FR)
  Receive Date: 20200715
  Receipt Date: 20200801
  Transmission Date: 20201103
  Serious: Yes (Death, Other)
  Sender: FDA-Public Use
  Company Number: FR-AUROBINDO-AUR-APL-2020-034676

PATIENT
  Age: 68 Year
  Sex: Male
  Weight: 80 kg

DRUGS (4)
  1. CISPLATIN. [Suspect]
     Active Substance: CISPLATIN
     Indication: CHEMOTHERAPY
     Dosage: 200 MILLIGRAM, 1 TOTAL
     Route: 041
     Dates: start: 20200528, end: 20200528
  2. ERBITUX [Suspect]
     Active Substance: CETUXIMAB
     Indication: CHEMOTHERAPY
     Dosage: 795 MILLIGRAM, 1 TOTAL
     Route: 041
     Dates: start: 20200528, end: 20200528
  3. MAGNESIUM [Suspect]
     Active Substance: MAGNESIUM
     Indication: FLUID REPLACEMENT
     Dosage: 1.5 GRAM, 1 TOTAL
     Route: 041
     Dates: start: 20200528, end: 20200528
  4. ONDANSETRON [Suspect]
     Active Substance: ONDANSETRON
     Indication: CHEMOTHERAPY
     Dosage: 8 MILLIGRAM, ONCE A DAY
     Route: 041
     Dates: start: 20200528, end: 20200528

REACTIONS (1)
  - Cardio-respiratory arrest [Fatal]

NARRATIVE: CASE EVENT DATE: 20200528
